FAERS Safety Report 24427910 (Version 2)
Quarter: 2024Q4

REPORT INFORMATION
  Report Type: Spontaneous
  Country: IT (occurrence: IT)
  Receive Date: 20241011
  Receipt Date: 20241108
  Transmission Date: 20250115
  Serious: Yes (Death, Other)
  Sender: NOVARTIS
  Company Number: IT-002147023-NVSC2024IT199727

PATIENT
  Age: 50 Year
  Sex: Female

DRUGS (6)
  1. DABRAFENIB [Suspect]
     Active Substance: DABRAFENIB
     Indication: BRAF V600E mutation positive
     Dosage: UNK
     Route: 065
     Dates: start: 202005
  2. DABRAFENIB [Suspect]
     Active Substance: DABRAFENIB
     Dosage: UNK
     Route: 065
     Dates: start: 202211
  3. TRAMETINIB [Suspect]
     Active Substance: TRAMETINIB
     Indication: BRAF V600E mutation positive
     Dosage: UNK
     Route: 065
     Dates: start: 202005
  4. TRAMETINIB [Suspect]
     Active Substance: TRAMETINIB
     Dosage: UNK
     Route: 065
     Dates: start: 202211
  5. IPILIMUMAB [Concomitant]
     Active Substance: IPILIMUMAB
     Indication: Eastern Cooperative Oncology Group performance status
     Dosage: UNK
     Route: 065
     Dates: start: 202203
  6. NIVOLUMAB [Concomitant]
     Active Substance: NIVOLUMAB
     Indication: Eastern Cooperative Oncology Group performance status
     Dosage: UNK
     Route: 065
     Dates: start: 202203

REACTIONS (8)
  - Malignant neoplasm progression [Fatal]
  - Metastatic malignant melanoma [Unknown]
  - Metastases to lymph nodes [Unknown]
  - Rash [Unknown]
  - Pyrexia [Unknown]
  - Hypophysitis [Unknown]
  - Gastrointestinal disorder [Unknown]
  - Rib fracture [Unknown]

NARRATIVE: CASE EVENT DATE: 20230701
